FAERS Safety Report 16744942 (Version 1)
Quarter: 2019Q3

REPORT INFORMATION
  Report Type: Spontaneous
  Country: US (occurrence: US)
  Receive Date: 20190827
  Receipt Date: 20190827
  Transmission Date: 20191005
  Serious: Yes (Hospitalization, Other)
  Sender: FDA-Public Use
  Company Number: US-SA-2019SA234664

PATIENT
  Sex: Male

DRUGS (1)
  1. ALPROLIX [Suspect]
     Active Substance: EFTRENONACOG ALFA
     Route: 065

REACTIONS (4)
  - Peripheral swelling [Recovering/Resolving]
  - Pain in extremity [Unknown]
  - Thrombosis [Unknown]
  - Angiopathy [Unknown]

NARRATIVE: CASE EVENT DATE: 20190811
